FAERS Safety Report 4979939-4 (Version None)
Quarter: 2006Q2

REPORT INFORMATION
  Report Type: 
  Country: None (occurrence: None)
  Receive Date: 20060421
  Receipt Date: 20051020
  Transmission Date: 20061013
  Serious: Yes (Hospitalization, Other)
  Sender: FDA-Public Use
  Company Number: US-MERCK-0510USA08368

PATIENT
  Age: 73 Year
  Sex: Male
  Weight: 105 kg

DRUGS (7)
  1. VIOXX [Suspect]
     Indication: ARTHRALGIA
     Route: 048
     Dates: end: 20020211
  2. VIOXX [Suspect]
     Route: 048
  3. VIOXX [Suspect]
     Indication: OSTEOARTHRITIS
     Route: 048
     Dates: end: 20020211
  4. VIOXX [Suspect]
     Route: 048
  5. ASPIRIN [Concomitant]
     Indication: ARTHRALGIA
     Route: 065
  6. TYLENOL (CAPLET) [Concomitant]
     Indication: ARTHRALGIA
     Route: 065
  7. VIAGRA [Concomitant]
     Route: 065

REACTIONS (22)
  - AORTIC ARTERIOSCLEROSIS [None]
  - CEREBROVASCULAR ACCIDENT [None]
  - COLONIC POLYP [None]
  - DILATATION ATRIAL [None]
  - DUODENITIS [None]
  - FASCIITIS [None]
  - GASTRIC ULCER [None]
  - GASTRITIS EROSIVE [None]
  - GASTROINTESTINAL HAEMORRHAGE [None]
  - GRAVITATIONAL OEDEMA [None]
  - HAEMATOCHEZIA [None]
  - HIATUS HERNIA [None]
  - IRON DEFICIENCY ANAEMIA [None]
  - LACUNAR INFARCTION [None]
  - LOWER GASTROINTESTINAL HAEMORRHAGE [None]
  - OESOPHAGITIS [None]
  - OSTEOARTHRITIS [None]
  - OTITIS MEDIA ACUTE [None]
  - SEBORRHOEIC KERATOSIS [None]
  - TRANSIENT ISCHAEMIC ATTACK [None]
  - VARICOSE VEIN [None]
  - WRONG TECHNIQUE IN DRUG USAGE PROCESS [None]
